FAERS Safety Report 17329982 (Version 2)
Quarter: 2020Q3

REPORT INFORMATION
  Report Type: Spontaneous
  Country: US (occurrence: US)
  Receive Date: 20200128
  Receipt Date: 20200826
  Transmission Date: 20201102
  Serious: Yes (Other)
  Sender: FDA-Public Use
  Company Number: US-SA-2020SA020236

PATIENT

DRUGS (1)
  1. ZANTAC [Suspect]
     Active Substance: RANITIDINE HYDROCHLORIDE
     Dosage: 150 MG, QD
     Dates: start: 200201, end: 200901

REACTIONS (3)
  - Anxiety [Unknown]
  - Breast cancer female [Unknown]
  - Renal cancer [Unknown]

NARRATIVE: CASE EVENT DATE: 20100101
